FAERS Safety Report 12700315 (Version 2)
Quarter: 2018Q4

REPORT INFORMATION
  Report Type: Spontaneous
  Country: US (occurrence: US)
  Receive Date: 20160830
  Receipt Date: 20181123
  Transmission Date: 20190204
  Serious: No
  Sender: FDA-Public Use
  Company Number: US-SA-2015SA171434

PATIENT
  Age: 28 Year
  Sex: Male
  Weight: 61.41 kg

DRUGS (11)
  1. FABRAZYME [Suspect]
     Active Substance: AGALSIDASE BETA
     Indication: LIPIDOSIS
     Dosage: .98 MG/KG,QOW
     Route: 041
     Dates: start: 20121016
  2. LIDOCAINE. [Concomitant]
     Active Substance: LIDOCAINE
     Dosage: 4 %,UNK
     Dates: start: 20150127
  3. BENADRYL [Concomitant]
     Active Substance: DIPHENHYDRAMINE HYDROCHLORIDE
     Dosage: 25 MG,QD
     Route: 048
     Dates: start: 20120913
  4. ZOLOFT [Concomitant]
     Active Substance: SERTRALINE HYDROCHLORIDE
     Dosage: UNK UNK,QD
     Route: 048
     Dates: start: 20140915
  5. OMEPRAZOLE. [Concomitant]
     Active Substance: OMEPRAZOLE
     Dosage: 1 CAP
     Route: 048
     Dates: start: 20121008
  6. ZOFRAN [ONDANSETRON] [Concomitant]
     Dosage: 4 MG,UNK
     Route: 048
     Dates: start: 20121008
  7. FABRAZYME [Suspect]
     Active Substance: AGALSIDASE BETA
     Indication: FABRY^S DISEASE
     Dosage: .98 MG/KG,QOW
     Route: 041
  8. EPIPEN [Concomitant]
     Active Substance: EPINEPHRINE
     Indication: ANAPHYLACTIC REACTION
     Dosage: .3 MG,UNK
     Route: 030
     Dates: start: 20150127
  9. COZAAR [Concomitant]
     Active Substance: LOSARTAN POTASSIUM
     Dosage: 75 MG,UNK
     Route: 048
     Dates: start: 20120913
  10. SODIUM CHLORIDE. [Suspect]
     Active Substance: SODIUM CHLORIDE
     Indication: FLUSHING
     Dosage: .9 %,UNK
     Route: 042
     Dates: start: 20150127
  11. PARACETAMOL [Concomitant]
     Active Substance: ACETAMINOPHEN
     Dosage: 1000 MG,QD
     Route: 048
     Dates: start: 20120913

REACTIONS (1)
  - Pyrexia [Recovered/Resolved]

NARRATIVE: CASE EVENT DATE: 20151020
